FAERS Safety Report 6549862-2 (Version None)
Quarter: 2010Q1

REPORT INFORMATION
  Report Type: 
  Country: None (occurrence: None)
  Receive Date: 20100125
  Receipt Date: 20100115
  Transmission Date: 20100710
  Serious: Yes (Death, Hospitalization)
  Sender: FDA-Public Use
  Company Number: JP-BAYER-200914775BYL

PATIENT
  Age: 65 Year
  Sex: Male
  Weight: 58 kg

DRUGS (15)
  1. NEXAVAR [Suspect]
     Indication: HEPATIC NEOPLASM MALIGNANT
     Dosage: TOTAL DAILY DOSE: 400 MG  UNIT DOSE: 200 MG
     Route: 048
     Dates: start: 20091125, end: 20091130
  2. IA-CALL [Concomitant]
     Indication: HEPATIC NEOPLASM MALIGNANT
     Route: 042
     Dates: start: 20091001, end: 20091001
  3. SEISHOKU [Concomitant]
     Dosage: 20ML-2L/DAY
     Route: 041
     Dates: end: 20091203
  4. ATARAX [Concomitant]
     Route: 041
     Dates: end: 20091203
  5. SOSEGON [Concomitant]
     Dosage: 30-45MG/DAY
     Route: 041
     Dates: end: 20091201
  6. NOVAMIN [Concomitant]
     Dosage: 10-15MG/DAY
     Route: 041
     Dates: end: 20091203
  7. TRIPAREN NO.2 [Concomitant]
     Route: 041
     Dates: end: 20091203
  8. SANDOSTATIN [Concomitant]
     Route: 041
     Dates: end: 20091203
  9. INTRALIPOS10% [Concomitant]
     Dosage: UNIT DOSE: 10 %
     Route: 041
     Dates: end: 20091203
  10. CEFAMEZIN ALPHA [Concomitant]
     Dosage: 1-2G/DAY
     Route: 041
     Dates: start: 20091121, end: 20091203
  11. SOLITA-T NO.1 [Concomitant]
     Route: 041
     Dates: start: 20091203, end: 20091203
  12. SOLITA-T NO.1 [Concomitant]
     Route: 041
     Dates: start: 20091125, end: 20091125
  13. KYTRIL [Concomitant]
     Dosage: 1-3MG/DAY NO ADMINISTRATION ONLY 27-NOV-2009
     Route: 041
     Dates: start: 20091125, end: 20091201
  14. ISOTONIC SODIUM CHLORIDE SOLUTION [Concomitant]
     Route: 041
     Dates: start: 20091127, end: 20091130
  15. POTACOL-R [Concomitant]
     Route: 041
     Dates: start: 20091128, end: 20091201

REACTIONS (6)
  - DIARRHOEA [None]
  - HEPATIC NEOPLASM MALIGNANT [None]
  - MALIGNANT NEOPLASM PROGRESSION [None]
  - PNEUMONIA ASPIRATION [None]
  - RASH [None]
  - RESPIRATORY FAILURE [None]
